FAERS Safety Report 10611883 (Version 1)
Quarter: 2014Q4

REPORT INFORMATION
  Report Type: Spontaneous
  Country: IN (occurrence: IN)
  Receive Date: 20141126
  Receipt Date: 20141126
  Transmission Date: 20150529
  Serious: Yes (Other)
  Sender: FDA-Public Use
  Company Number: PHHY2014IN150810

PATIENT
  Age: 55 Year
  Sex: Male

DRUGS (3)
  1. AMIODARONE [Suspect]
     Active Substance: AMIODARONE
     Indication: ATRIAL FIBRILLATION
     Route: 065
  2. ASPIRIN. [Concomitant]
     Active Substance: ASPIRIN
     Indication: ATRIAL FIBRILLATION
     Route: 065
  3. ATORVASTATIN [Concomitant]
     Active Substance: ATORVASTATIN
     Indication: ATRIAL FIBRILLATION
     Route: 065

REACTIONS (17)
  - Left ventricular hypertrophy [Recovered/Resolved]
  - Pulmonary arterial hypertension [Recovered/Resolved]
  - Cholelithiasis [Unknown]
  - Pulmonary fibrosis [Recovered/Resolved]
  - Effusion [Recovered/Resolved]
  - Interstitial lung disease [Recovering/Resolving]
  - Dyspnoea exertional [Recovered/Resolved]
  - Dyspnoea [Recovered/Resolved]
  - Dysphonia [Recovered/Resolved]
  - Pulmonary toxicity [Recovered/Resolved]
  - Chest discomfort [Recovered/Resolved]
  - Hepatomegaly [Unknown]
  - Diastolic dysfunction [Recovered/Resolved]
  - Cough [Recovered/Resolved]
  - Pallor [Recovered/Resolved]
  - Crepitations [Recovered/Resolved]
  - Wheezing [Recovered/Resolved]
